FAERS Safety Report 8968338 (Version 1)
Quarter: 2012Q4

REPORT INFORMATION
  Report Type: Report from Study
  Country: US (occurrence: US)
  Receive Date: 20121217
  Receipt Date: 20121217
  Transmission Date: 20130627
  Serious: Yes (Other)
  Sender: FDA-Public Use
  Company Number: US-ROCHE-1169758

PATIENT
  Sex: Male

DRUGS (1)
  1. CAPECITABINE [Suspect]
     Indication: NEOPLASM MALIGNANT
     Dosage: LAST CYCLE ON: 14/Feb/2010
     Route: 065

REACTIONS (1)
  - Knee operation [Unknown]
